FAERS Safety Report 20591050 (Version 1)
Quarter: 2022Q1

REPORT INFORMATION
  Report Type: Report from Study
  Country: US (occurrence: US)
  Receive Date: 20220314
  Receipt Date: 20220314
  Transmission Date: 20220423
  Serious: Yes (Hospitalization, Other)
  Sender: FDA-Public Use
  Company Number: US-TAKEDA-US202030870

PATIENT
  Age: 77 Year
  Sex: Male

DRUGS (1)
  1. HUMAN IMMUNOGLOBULIN G [Suspect]
     Active Substance: HUMAN IMMUNOGLOBULIN G
     Indication: Primary immunodeficiency syndrome
     Dosage: UNK
     Route: 065

REACTIONS (6)
  - Bronchitis [Unknown]
  - Pneumonia [Unknown]
  - Lung neoplasm malignant [Unknown]
  - COVID-19 [Unknown]
  - Emphysema [Unknown]
  - Asthma [Unknown]

NARRATIVE: CASE EVENT DATE: 20211201
